FAERS Safety Report 8257932-6 (Version None)
Quarter: 2012Q2

REPORT INFORMATION
  Report Type: 
  Country: None (occurrence: None)
  Receive Date: 20120404
  Receipt Date: 20120327
  Transmission Date: 20120825
  Serious: Yes (Other)
  Sender: FDA-Public Use
  Company Number: US-BAYER-2012-007608

PATIENT
  Age: 30 Year
  Sex: Female

DRUGS (2)
  1. DAILY PRENATAL (CALCIUM, VITAMINS, AND FOLIC ACID) [Concomitant]
     Dosage: UNK
     Dates: start: 20110601
  2. MIRENA [Suspect]
     Indication: CONTRACEPTION
     Dosage: 20 MCG/24HR, CONT
     Route: 015
     Dates: start: 20111219, end: 20120124

REACTIONS (4)
  - GENITAL HAEMORRHAGE [None]
  - HEADACHE [None]
  - MENSTRUATION IRREGULAR [None]
  - ABDOMINAL PAIN LOWER [None]
